FAERS Safety Report 9015898 (Version 1)
Quarter: 2013Q1

REPORT INFORMATION
  Report Type: Spontaneous
  Country: BR (occurrence: BR)
  Receive Date: 20130116
  Receipt Date: 20130116
  Transmission Date: 20140127
  Serious: Yes (Other)
  Sender: FDA-Public Use
  Company Number: BR-MERCK-1301BRA007407

PATIENT
  Age: 77 Year
  Sex: 0

DRUGS (2)
  1. AMITRIPTYLINE HYDROCHLORIDE [Suspect]
  2. FLUOXETINE [Concomitant]

REACTIONS (1)
  - Serotonin syndrome [Unknown]
